FAERS Safety Report 8519027-3 (Version None)
Quarter: 2012Q3

REPORT INFORMATION
  Report Type: 
  Country: None (occurrence: None)
  Receive Date: 20120718
  Receipt Date: 20120713
  Transmission Date: 20120928
  Serious: Yes (Hospitalization, Congenital Anomaly, Other)
  Sender: FDA-Public Use
  Company Number: GXKR2012DE002253

PATIENT

DRUGS (3)
  1. LEVOTHYROXINE SODIUM [Concomitant]
     Dosage: MATERNAL DOSE: 112 NG, DAILY
     Route: 064
  2. ACYCLOVIR [Concomitant]
     Route: 064
     Dates: start: 20110101
  3. VENLAFAXINE [Suspect]
     Dosage: MATERNAL DOSE: 150 MG, DAILY
     Route: 064

REACTIONS (3)
  - TALIPES [None]
  - HYPOTHERMIA NEONATAL [None]
  - FOETAL EXPOSURE DURING PREGNANCY [None]
